FAERS Safety Report 11195792 (Version 1)
Quarter: 2015Q2

REPORT INFORMATION
  Report Type: Spontaneous
  Country: US (occurrence: None)
  Receive Date: 20150615
  Receipt Date: 20150615
  Transmission Date: 20150821
  Serious: Yes (Disabling, Other)
  Sender: FDA-Public Use
  Company Number: None

PATIENT
  Age: 35 Year
  Sex: Female
  Weight: 53.07 kg

DRUGS (18)
  1. APETIGEN [Concomitant]
  2. METRONIDAZOLE. [Concomitant]
     Active Substance: METRONIDAZOLE
  3. ATORVASTATIN [Concomitant]
     Active Substance: ATORVASTATIN
  4. RANITIDINE [Concomitant]
     Active Substance: RANITIDINE\RANITIDINE HYDROCHLORIDE
  5. ALPRAZOLAM. [Concomitant]
     Active Substance: ALPRAZOLAM
  6. OMEGA 3 [Concomitant]
     Active Substance: OMEGA-3 FATTY ACIDS
  7. RISPERIDONE. [Suspect]
     Active Substance: RISPERIDONE
     Indication: SCHIZOPHRENIA
     Dosage: 1 PER NIGHT ONCE DAILY TAKEN BY MOUTH
     Route: 048
  8. TRIAMCIN [Concomitant]
  9. VITAMIN C [Concomitant]
     Active Substance: ASCORBIC ACID
  10. CENTRUM SILVER [Concomitant]
     Active Substance: VITAMINS
  11. ORABAS [Concomitant]
  12. CICLOPIROX. [Concomitant]
     Active Substance: CICLOPIROX
  13. VITAMIN B COMPLEX [Concomitant]
     Active Substance: CYANOCOBALAMIN\DEXPANTHENOL\NIACINAMIDE\PYRIDOXINE HYDROCHLORIDE\RIBOFLAVIN 5^-PHOSPHATE SODIUM\THIAMINE HYDROCHLORIDE\VITAMIN B COMPLEX
  14. CYANOCOBALAMIN. [Concomitant]
     Active Substance: CYANOCOBALAMIN
  15. RISPERIDONE. [Concomitant]
     Active Substance: RISPERIDONE
  16. AZITHROMYCIN [Concomitant]
     Active Substance: AZITHROMYCIN ANHYDROUS
  17. D3 [Concomitant]
     Active Substance: 25-HYDROXYCHOLECALCIFEROL, 5-TRANS-
  18. SERTRALINE [Concomitant]
     Active Substance: SERTRALINE HYDROCHLORIDE

REACTIONS (8)
  - Akathisia [None]
  - Muscle twitching [None]
  - Drug ineffective [None]
  - Blepharospasm [None]
  - Bladder cancer [None]
  - Dyskinesia [None]
  - Urinary tract infection [None]
  - Restlessness [None]

NARRATIVE: CASE EVENT DATE: 20010103
